FAERS Safety Report 7205319-7 (Version None)
Quarter: 2010Q4

REPORT INFORMATION
  Report Type: 
  Country: None (occurrence: None)
  Receive Date: 20101231
  Receipt Date: 20101217
  Transmission Date: 20110411
  Serious: Yes (Hospitalization)
  Sender: FDA-Public Use
  Company Number: US-CELGENEUS-163-FK228-10122595

PATIENT
  Sex: Female
  Weight: 65.5 kg

DRUGS (17)
  1. ROMIDEPSIN [Suspect]
     Indication: OVARIAN CANCER
     Route: 051
     Dates: start: 20100423, end: 20100618
  2. ROMIDEPSIN [Suspect]
     Route: 051
     Dates: start: 20100101
  3. FLUIDS [Concomitant]
     Route: 051
     Dates: start: 20100629
  4. OMEPRAZOLE [Concomitant]
     Route: 065
  5. CALCITONIN [Concomitant]
     Route: 065
  6. PEPCID [Concomitant]
     Route: 065
  7. AMLODIPINE [Concomitant]
     Route: 065
  8. HYDRALAZINE [Concomitant]
     Route: 065
  9. DEXAMETHASONE [Concomitant]
     Route: 065
  10. MAGNESIUM [Concomitant]
     Route: 065
  11. POTASSIUM [Concomitant]
     Route: 065
  12. GLYBURIDE [Concomitant]
     Route: 065
  13. ACTOS [Concomitant]
     Route: 065
  14. JANUVIA [Concomitant]
     Route: 065
  15. SIMVASTATIN [Concomitant]
     Route: 065
  16. CLONIDINE [Concomitant]
     Route: 065
  17. TRIAMTERENE AND HYDROCHLOROTHIAZIDE [Concomitant]
     Route: 065

REACTIONS (3)
  - DEHYDRATION [None]
  - MENTAL STATUS CHANGES [None]
  - OEDEMA PERIPHERAL [None]
